FAERS Safety Report 5975539-8 (Version None)
Quarter: 2008Q4

REPORT INFORMATION
  Report Type: 
  Country: None (occurrence: None)
  Receive Date: 20081202
  Receipt Date: 20080430
  Transmission Date: 20090506
  Serious: No
  Sender: FDA-Public Use
  Company Number: A0725600A

PATIENT
  Age: 6 Year
  Sex: Male

DRUGS (3)
  1. AUGMENTIN '125' [Suspect]
     Indication: SINUSITIS
     Dosage: 1.5TSP TWICE PER DAY
     Route: 048
     Dates: start: 20080426, end: 20080429
  2. ADVAIR HFA [Concomitant]
  3. NASONEX [Concomitant]

REACTIONS (3)
  - DIARRHOEA [None]
  - LETHARGY [None]
  - VOMITING [None]
